FAERS Safety Report 18180258 (Version 1)
Quarter: 2020Q3

REPORT INFORMATION
  Report Type: Spontaneous
  Country: US (occurrence: US)
  Receive Date: 20200821
  Receipt Date: 20200821
  Transmission Date: 20201103
  Serious: No
  Sender: FDA-Public Use
  Company Number: US-ACCORD-154034

PATIENT

DRUGS (1)
  1. ANASTROZOLE. [Suspect]
     Active Substance: ANASTROZOLE
     Indication: PRODUCT USED FOR UNKNOWN INDICATION
     Dosage: STRENGTH: 1 MG?1 MG DAILY
     Route: 048
     Dates: start: 201905

REACTIONS (3)
  - Hot flush [Unknown]
  - Paraesthesia [Unknown]
  - Musculoskeletal stiffness [Unknown]
